FAERS Safety Report 18542088 (Version 1)
Quarter: 2020Q4

REPORT INFORMATION
  Report Type: Spontaneous
  Country: PK (occurrence: PK)
  Receive Date: 20201125
  Receipt Date: 20201125
  Transmission Date: 20210114
  Serious: Yes (Other)
  Sender: FDA-Public Use
  Company Number: PK-AMGEN-PAKSP2020074020

PATIENT
  Age: 50 Year
  Sex: Male

DRUGS (6)
  1. ENBREL [Suspect]
     Active Substance: ETANERCEPT
     Indication: ANKYLOSING SPONDYLITIS
     Dosage: 50 MG, FORTNIGHTLY
     Route: 058
  2. TRAMAL [Concomitant]
     Active Substance: TRAMADOL
     Dosage: 100 MG, 2X/DAY, CONTINUE
  3. XOBIX [Concomitant]
     Dosage: 15 MILLIGRAM, QD
  4. CONTOUR [ESOMEPRAZOLE MAGNESIUM] [Concomitant]
     Dosage: 40 MG, TAKE ONE TABLET BEFORE BREAKFAST
  5. CELBEXX [Concomitant]
     Dosage: 100 MG, 2X/DAY CONTINUE
  6. SALAZODINE [Concomitant]
     Dosage: 500MG, 1 TABLET DAILY 7 DAYS, THEN 2 TABLETS 7 DAYS, THEN 3 TABLETS 7 DAYS, THEN 4 TABLETS DAILY

REACTIONS (2)
  - Ankylosing spondylitis [Unknown]
  - Off label use [Unknown]
